FAERS Safety Report 20958592 (Version 2)
Quarter: 2022Q2

REPORT INFORMATION
  Report Type: Report from Study
  Country: FR (occurrence: None)
  Receive Date: 20220614
  Receipt Date: 20220630
  Transmission Date: 20220721
  Serious: Yes (Hospitalization)
  Sender: FDA-Public Use
  Company Number: FR-ROCHE-3115373

PATIENT
  Age: 53 Year
  Sex: Male

DRUGS (10)
  1. ATEZOLIZUMAB [Suspect]
     Active Substance: ATEZOLIZUMAB
     Indication: Soft tissue sarcoma
     Dosage: ON 18/MAY/2022, HE TOOK THE LAST DOSE OF STUDY DRUG.
     Route: 042
     Dates: start: 20220421, end: 20220601
  2. COBIMETINIB [Suspect]
     Active Substance: COBIMETINIB
     Indication: Soft tissue sarcoma
     Dosage: ON 31/MAY/2022, HE TOOK THE LAST DOSE OF STUDY DRUG AND WAS TEMPORARILY STOPPED ON 01/JUN/2022.
     Route: 048
     Dates: start: 20220421
  3. TICAGRELOR [Concomitant]
     Active Substance: TICAGRELOR
     Route: 048
     Dates: start: 20220326
  4. KARDEGIC [Concomitant]
     Active Substance: ASPIRIN DL-LYSINE
     Route: 048
     Dates: start: 20220326
  5. BISOPROLOL [Concomitant]
     Active Substance: BISOPROLOL
     Route: 048
     Dates: start: 20220326
  6. ATORVASTATIN [Concomitant]
     Active Substance: ATORVASTATIN
     Route: 048
     Dates: start: 20220326
  7. CODEINE [Concomitant]
     Active Substance: CODEINE
  8. RACECADOTRIL [Concomitant]
     Active Substance: RACECADOTRIL
  9. SMECTA [Concomitant]
     Active Substance: MONTMORILLONITE
  10. PANTOPRAZOLE [Concomitant]
     Active Substance: PANTOPRAZOLE

REACTIONS (2)
  - Dyspnoea [Not Recovered/Not Resolved]
  - Pneumonia [Not Recovered/Not Resolved]

NARRATIVE: CASE EVENT DATE: 20220601
